FAERS Safety Report 6497161-X (Version None)
Quarter: 2009Q4

REPORT INFORMATION
  Report Type: 
  Country: None (occurrence: None)
  Receive Date: 20091215
  Receipt Date: 20090504
  Transmission Date: 20100525
  Serious: No
  Sender: FDA-Public Use
  Company Number: A0782366A

PATIENT
  Age: 90 Year
  Sex: Male

DRUGS (3)
  1. AVODART [Suspect]
     Dosage: 1CAP PER DAY
     Route: 048
     Dates: start: 20090101
  2. NORVASC [Concomitant]
  3. ASPIRIN [Concomitant]

REACTIONS (1)
  - DRUG INEFFECTIVE [None]
